FAERS Safety Report 6704316-5 (Version None)
Quarter: 2010Q2

REPORT INFORMATION
  Report Type: 
  Country: None (occurrence: None)
  Receive Date: 20100423
  Receipt Date: 20100127
  Transmission Date: 20101027
  Serious: No
  Sender: FDA-Public Use
  Company Number: ALL1-2010-00426

PATIENT
  Age: 30 Year
  Sex: Female
  Weight: 59.9 kg

DRUGS (2)
  1. VYVANSE [Suspect]
     Indication: ATTENTION DEFICIT/HYPERACTIVITY DISORDER
     Dosage: 50 MG, 1/DAY:QD (SCHOOL DAYS ONLY), ORAL
     Route: 048
     Dates: start: 20090501
  2. HUMIRA [Concomitant]

REACTIONS (4)
  - ARTHRALGIA [None]
  - CROHN'S DISEASE [None]
  - MUSCULAR WEAKNESS [None]
  - RAYNAUD'S PHENOMENON [None]
